FAERS Safety Report 15754713 (Version 1)
Quarter: 2018Q4

REPORT INFORMATION
  Report Type: Spontaneous
  Country: IL (occurrence: IL)
  Receive Date: 20181224
  Receipt Date: 20181224
  Transmission Date: 20190205
  Serious: Yes (Hospitalization)
  Sender: FDA-Public Use
  Company Number: IL-DEXPHARM-20180939

PATIENT
  Age: 71 Year
  Sex: Male

DRUGS (7)
  1. ENALADEX [Suspect]
     Active Substance: ENALAPRIL MALEATE
  2. OMEPRADEX [Suspect]
     Active Substance: OMEPRAZOLE
  3. SIMVACOR [Concomitant]
     Active Substance: SIMVASTATIN
  4. ROKACET PLUS [Concomitant]
  5. GLUCOMIN [Suspect]
     Active Substance: METFORMIN HYDROCHLORIDE
  6. XATRAL [Concomitant]
     Active Substance: ALFUZOSIN
  7. MICROPIRIN [Concomitant]
     Active Substance: ASPIRIN

REACTIONS (6)
  - Blood creatinine abnormal [Unknown]
  - Hypoglycaemia [Unknown]
  - General physical condition decreased [Unknown]
  - Product administration error [Unknown]
  - Asthenia [Unknown]
  - Pallor [Unknown]
